FAERS Safety Report 25492911 (Version 1)
Quarter: 2025Q2

REPORT INFORMATION
  Report Type: Spontaneous
  Country: US (occurrence: US)
  Receive Date: 20250630
  Receipt Date: 20250630
  Transmission Date: 20250716
  Serious: No
  Sender: AUROBINDO
  Company Number: US-AUROBINDO-AUR-APL-2025-024656

PATIENT
  Age: 71 Year
  Sex: Male
  Weight: 98.157 kg

DRUGS (1)
  1. LENALIDOMIDE [Suspect]
     Active Substance: LENALIDOMIDE
     Indication: Plasma cell myeloma
     Route: 048
     Dates: start: 20250331, end: 20250418

REACTIONS (1)
  - Bleeding time prolonged [Recovering/Resolving]

NARRATIVE: CASE EVENT DATE: 20231228
